FAERS Safety Report 4554836-7 (Version None)
Quarter: 2005Q1

REPORT INFORMATION
  Report Type: 
  Country: None (occurrence: None)
  Receive Date: 20050118
  Receipt Date: 20050105
  Transmission Date: 20050727
  Serious: Yes (Hospitalization)
  Sender: FDA-Public Use
  Company Number: 12790887

PATIENT
  Age: 35 Year
  Sex: Female

DRUGS (3)
  1. LAMIVUDINE [Suspect]
     Indication: HIV INFECTION
     Route: 048
     Dates: start: 20041110
  2. STAVUDINE [Suspect]
     Indication: HIV INFECTION
     Dates: start: 20041110
  3. NEVIRAPINE [Suspect]
     Indication: HIV INFECTION
     Dates: start: 20041110

REACTIONS (9)
  - CONJUNCTIVITIS [None]
  - EATING DISORDER [None]
  - ERYTHEMA [None]
  - HYPERSENSITIVITY [None]
  - PALMAR ERYTHEMA [None]
  - PYREXIA [None]
  - RASH [None]
  - SKIN EXFOLIATION [None]
  - SWELLING FACE [None]
